FAERS Safety Report 5683582-1 (Version None)
Quarter: 2008Q2

REPORT INFORMATION
  Report Type: 
  Country: None (occurrence: None)
  Receive Date: 20080319
  Receipt Date: 20080204
  Transmission Date: 20081010
  Serious: Yes (Other)
  Sender: FDA-Public Use
  Company Number: US-WYE-H02502808

PATIENT
  Sex: Female

DRUGS (1)
  1. LYBREL [Suspect]
     Dosage: 1 TABLET 1X PER 1 DAY, ORAL
     Route: 048

REACTIONS (1)
  - ENDOMETRIAL DISORDER [None]
